FAERS Safety Report 7511939-2 (Version None)
Quarter: 2011Q2

REPORT INFORMATION
  Report Type: 
  Country: None (occurrence: None)
  Receive Date: 20110531
  Receipt Date: 20110526
  Transmission Date: 20111010
  Serious: Yes (Hospitalization)
  Sender: FDA-Public Use
  Company Number: AU-JNJFOC-20110508460

PATIENT
  Sex: Male

DRUGS (15)
  1. ABIRATERONE ACETATE [Suspect]
     Indication: PROSTATE CANCER METASTATIC
     Route: 048
     Dates: start: 20081022
  2. FELODIPINE [Concomitant]
     Indication: HYPERTENSION
     Route: 048
     Dates: start: 20021001
  3. LEUPROLIDE ACETATE [Concomitant]
     Indication: HORMONE THERAPY
     Route: 030
     Dates: start: 20081022
  4. NYSTATIN [Concomitant]
     Indication: ORAL CANDIDIASIS
     Route: 048
     Dates: start: 20101001
  5. LEUPROLIDE ACETATE [Concomitant]
     Indication: PROSTATE CANCER
     Route: 030
     Dates: start: 20081022
  6. CHOLECALCIFEROL [Concomitant]
     Indication: VITAMIN SUPPLEMENTATION
     Route: 048
     Dates: start: 20110201
  7. POTASSIUM CHLORIDE [Concomitant]
     Indication: HYPOKALAEMIA
     Route: 048
     Dates: start: 20100209
  8. ABIRATERONE ACETATE [Suspect]
     Route: 048
     Dates: start: 20101214
  9. PREDNISONE [Suspect]
     Route: 048
     Dates: start: 20101214
  10. MONOPRIL PLUS [Concomitant]
     Indication: HYPERTENSION
     Route: 048
     Dates: start: 20090729
  11. PREDNISONE [Suspect]
     Indication: PROSTATE CANCER METASTATIC
     Route: 048
  12. IRON COMPLEX [Concomitant]
     Route: 048
     Dates: start: 20100830
  13. LEUPROLIDE ACETATE [Concomitant]
     Route: 030
     Dates: start: 20040101
  14. LEUPROLIDE ACETATE [Concomitant]
     Route: 030
     Dates: start: 20040101
  15. IRON COMPLEX [Concomitant]
     Indication: FATIGUE
     Route: 048
     Dates: start: 20100824, end: 20100829

REACTIONS (1)
  - DEVICE LEAKAGE [None]
